FAERS Safety Report 12089793 (Version 1)
Quarter: 2016Q1

REPORT INFORMATION
  Report Type: Spontaneous
  Country: US (occurrence: US)
  Receive Date: 20160218
  Receipt Date: 20160218
  Transmission Date: 20160526
  Serious: No
  Sender: FDA-Public Use
  Company Number: US-NEPHRON PHARMACEUTICALS CORPORATION-1048073

PATIENT
  Age: 95 Year
  Sex: Female
  Weight: 63.64 kg

DRUGS (2)
  1. IPRATROPIUM BROMIDE AND ALBUTEROL SULFATE [Suspect]
     Active Substance: ALBUTEROL SULFATE\IPRATROPIUM BROMIDE
     Indication: CHRONIC OBSTRUCTIVE PULMONARY DISEASE
     Route: 055
     Dates: start: 20160217
  2. OXYGEN. [Concomitant]
     Active Substance: OXYGEN
     Route: 055

REACTIONS (3)
  - Epistaxis [None]
  - Glossodynia [Recovering/Resolving]
  - Dry mouth [None]

NARRATIVE: CASE EVENT DATE: 20160217
